FAERS Safety Report 16836645 (Version 3)
Quarter: 2020Q3

REPORT INFORMATION
  Report Type: Report from Study
  Country: US (occurrence: US)
  Receive Date: 20190922
  Receipt Date: 20200804
  Transmission Date: 20201102
  Serious: Yes (Other)
  Sender: FDA-Public Use
  Company Number: PHHY2019US216074

PATIENT
  Age: 36 Year
  Sex: Female

DRUGS (1)
  1. GILENYA [Suspect]
     Active Substance: FINGOLIMOD HYDROCHLORIDE
     Indication: MULTIPLE SCLEROSIS
     Dosage: UNK UNK, QD
     Route: 048

REACTIONS (27)
  - Lymphocyte percentage decreased [Unknown]
  - Alanine aminotransferase increased [Unknown]
  - Fatigue [Not Recovered/Not Resolved]
  - Nausea [Unknown]
  - Weight decreased [Recovered/Resolved]
  - Muscle tightness [Not Recovered/Not Resolved]
  - Decreased appetite [Not Recovered/Not Resolved]
  - Mood altered [Not Recovered/Not Resolved]
  - Gastroenteritis viral [Recovered/Resolved]
  - Paraesthesia oral [Recovered/Resolved]
  - White blood cell count decreased [Unknown]
  - Melanocytic naevus [Not Recovered/Not Resolved]
  - Muscle spasms [Recovered/Resolved]
  - Headache [Unknown]
  - Hypertension [Recovered/Resolved]
  - Upper respiratory tract infection [Not Recovered/Not Resolved]
  - Sleep disorder [Unknown]
  - Tremor [Unknown]
  - Constipation [Not Recovered/Not Resolved]
  - Paraesthesia [Not Recovered/Not Resolved]
  - Feeling abnormal [Recovered/Resolved]
  - Hypertonic bladder [Not Recovered/Not Resolved]
  - Aspartate aminotransferase increased [Unknown]
  - Dizziness postural [Not Recovered/Not Resolved]
  - Ciliary muscle spasm [Not Recovered/Not Resolved]
  - Palpitations [Unknown]
  - Myalgia [Not Recovered/Not Resolved]

NARRATIVE: CASE EVENT DATE: 20180423
